FAERS Safety Report 5968323-2 (Version None)
Quarter: 2008Q4

REPORT INFORMATION
  Report Type: 
  Country: None (occurrence: None)
  Receive Date: 20081126
  Receipt Date: 20081121
  Transmission Date: 20090506
  Serious: Yes (Hospitalization)
  Sender: FDA-Public Use
  Company Number: US-JNJFOC-20081105676

PATIENT
  Sex: Female
  Weight: 72.58 kg

DRUGS (11)
  1. FENTANYL TRANSDERMAL SYSTEM [Suspect]
     Route: 062
  2. FENTANYL TRANSDERMAL SYSTEM [Suspect]
     Route: 062
  3. FENTANYL TRANSDERMAL SYSTEM [Suspect]
     Route: 062
  4. FENTANYL TRANSDERMAL SYSTEM [Suspect]
     Route: 062
  5. FENTANYL TRANSDERMAL SYSTEM [Suspect]
     Indication: BACK PAIN
     Route: 062
  6. FENTANYL TRANSDERMAL SYSTEM [Suspect]
     Indication: BACK PAIN
     Route: 062
  7. CLONIDINE [Concomitant]
     Indication: HYPERTENSION
     Route: 048
  8. COZAAR [Concomitant]
     Indication: HYPERTENSION
     Route: 048
  9. NEURONTIN [Concomitant]
     Indication: NEUROPATHY PERIPHERAL
     Route: 048
  10. LANTUS [Concomitant]
     Indication: DIABETES MELLITUS
     Dosage: 70 UNITS/EVERY EVENING
     Route: 058
  11. NOVOLOG [Concomitant]
     Indication: DIABETES MELLITUS
     Route: 058

REACTIONS (8)
  - BACK PAIN [None]
  - BILE DUCT OBSTRUCTION [None]
  - DYSPNOEA [None]
  - INADEQUATE ANALGESIA [None]
  - INSOMNIA [None]
  - PRODUCT QUALITY ISSUE [None]
  - VOMITING [None]
  - WEIGHT DECREASED [None]
